FAERS Safety Report 24062943 (Version 3)
Quarter: 2024Q3

REPORT INFORMATION
  Report Type: Spontaneous
  Country: US (occurrence: US)
  Receive Date: 20240709
  Receipt Date: 20240715
  Transmission Date: 20241017
  Serious: No
  Sender: ROCHE
  Company Number: US-ROCHE-10000007197

PATIENT
  Age: 74 Year
  Sex: Female
  Weight: 94.34 kg

DRUGS (1)
  1. ACTEMRA [Suspect]
     Active Substance: TOCILIZUMAB
     Indication: Rheumatoid arthritis
     Dosage: 162 MG PER 0.9 ML- INJECT 0.9 ML INTO SKIN EVERY 2 WEEKS. DISPENSED 1.8 ML ON 30-MAY-2024
     Route: 058
     Dates: start: 20240602

REACTIONS (3)
  - Product dose omission issue [Unknown]
  - Drug delivery system malfunction [Unknown]
  - No adverse event [Unknown]

NARRATIVE: CASE EVENT DATE: 20240616
